FAERS Safety Report 10068706 (Version 1)
Quarter: 2014Q2

REPORT INFORMATION
  Report Type: Report from Study
  Country: US (occurrence: CH)
  Receive Date: 20140409
  Receipt Date: 20140409
  Transmission Date: 20141212
  Serious: Yes (Hospitalization)
  Sender: FDA-Public Use
  Company Number: CH-FRI-1000066215

PATIENT
  Age: 70 Year
  Sex: Female
  Weight: 60 kg

DRUGS (6)
  1. ASENAPINE [Suspect]
     Indication: BIPOLAR I DISORDER
     Dosage: 10 MG
     Route: 060
     Dates: start: 20140203
  2. ASENAPINE [Suspect]
     Dosage: 10 MG
     Route: 060
     Dates: start: 20140205, end: 20140208
  3. NOVERIL [Concomitant]
     Dates: start: 201312
  4. LAMICTAL [Concomitant]
     Dates: start: 201312
  5. TEMESTA [Concomitant]
     Dates: start: 201403
  6. IMOVANE [Concomitant]
     Dates: start: 201312

REACTIONS (2)
  - Psychomotor retardation [Recovered/Resolved]
  - Somnolence [Recovered/Resolved]
